FAERS Safety Report 6890973-X (Version None)
Quarter: 2010Q3

REPORT INFORMATION
  Report Type: 
  Country: None (occurrence: None)
  Receive Date: 20100731
  Receipt Date: 20090423
  Transmission Date: 20110219
  Serious: Yes (Other)
  Sender: FDA-Public Use
  Company Number: US-PFIZER INC-2009203448

PATIENT
  Sex: Female
  Weight: 63.492 kg

DRUGS (6)
  1. LIPITOR [Suspect]
     Indication: CEREBROVASCULAR ACCIDENT PROPHYLAXIS
  2. AMIODARONE [Concomitant]
     Dosage: UNK
  3. NEXIUM [Concomitant]
     Dosage: UNK
  4. VALSARTAN [Concomitant]
     Dosage: UNK
  5. CARVEDILOL [Concomitant]
     Dosage: UNK
  6. FUROSEMIDE [Concomitant]
     Dosage: UNK

REACTIONS (6)
  - ASTHENIA [None]
  - BLOOD TEST ABNORMAL [None]
  - CARPAL TUNNEL SYNDROME [None]
  - DEPRESSION [None]
  - MYALGIA [None]
  - OSTEOARTHRITIS [None]
